FAERS Safety Report 5782113-5 (Version None)
Quarter: 2008Q2

REPORT INFORMATION
  Report Type: 
  Country: None (occurrence: None)
  Receive Date: 20080618
  Receipt Date: 20070822
  Transmission Date: 20081010
  Serious: Yes (Hospitalization)
  Sender: FDA-Public Use
  Company Number: 062-C5013-07081215

PATIENT
  Age: 69 Year
  Sex: Female

DRUGS (2)
  1. CC-5013 (LENALIDOMIDE)           (CAPSULES) [Suspect]
     Indication: AMYLOIDOSIS
     Dosage: 10 MG, DAILY, ORAL
     Route: 048
     Dates: start: 20070601
  2. CC-5013 (LENALIDOMIDE)           (CAPSULES) [Suspect]
     Indication: RENAL FAILURE
     Dosage: 10 MG, DAILY, ORAL
     Route: 048
     Dates: start: 20070601

REACTIONS (5)
  - HAEMATOTOXICITY [None]
  - NEUTROPENIA [None]
  - PETECHIAE [None]
  - SHUNT OCCLUSION [None]
  - THROMBOCYTOPENIA [None]
